FAERS Safety Report 14190554 (Version 3)
Quarter: 2018Q1

REPORT INFORMATION
  Report Type: Spontaneous
  Country: US (occurrence: US)
  Receive Date: 20171115
  Receipt Date: 20180301
  Transmission Date: 20180508
  Serious: Yes (Hospitalization)
  Sender: FDA-Public Use
  Company Number: US-JNJFOC-20171112654

PATIENT
  Age: 66 Year
  Sex: Male
  Weight: 88 kg

DRUGS (9)
  1. ENALAPRIL [Concomitant]
     Active Substance: ENALAPRIL
     Indication: HYPERTENSION
     Route: 065
  2. NITROSTAT [Concomitant]
     Active Substance: NITROGLYCERIN
     Dosage: EVERY 5 MIN AS NECESSARY
     Route: 060
  3. XARELTO [Suspect]
     Active Substance: RIVAROXABAN
     Indication: PRODUCT USED FOR UNKNOWN INDICATION
     Route: 048
     Dates: start: 20160825
  4. TYLENOL [Concomitant]
     Active Substance: ACETAMINOPHEN
     Indication: PAIN
     Route: 048
  5. COZAAR [Concomitant]
     Active Substance: LOSARTAN POTASSIUM
     Route: 048
  6. LASIX [Concomitant]
     Active Substance: FUROSEMIDE
     Route: 048
  7. KLOR-CON [Concomitant]
     Active Substance: POTASSIUM CHLORIDE
     Route: 048
  8. XANAX [Concomitant]
     Active Substance: ALPRAZOLAM
     Route: 048
  9. LIPITOR [Concomitant]
     Active Substance: ATORVASTATIN CALCIUM
     Route: 048

REACTIONS (8)
  - Left ventricular dysfunction [Unknown]
  - Atrial fibrillation [Recovering/Resolving]
  - Sinus node dysfunction [Recovering/Resolving]
  - Blood glucose abnormal [Unknown]
  - Renal cell carcinoma [Unknown]
  - Peripheral vascular disorder [Recovering/Resolving]
  - Coronary artery disease [Recovering/Resolving]
  - Type V hyperlipidaemia [Recovering/Resolving]

NARRATIVE: CASE EVENT DATE: 201608
